FAERS Safety Report 10997832 (Version 1)
Quarter: 2015Q2

REPORT INFORMATION
  Report Type: Spontaneous
  Country: US (occurrence: US)
  Receive Date: 20150408
  Receipt Date: 20150408
  Transmission Date: 20150821
  Serious: No
  Sender: FDA-Public Use
  Company Number: US-BANPHARM-20143152

PATIENT
  Age: 73 Year
  Sex: Female
  Weight: 45.81 kg

DRUGS (4)
  1. CALCIUM [Concomitant]
     Active Substance: CALCIUM
  2. ALEVE [Suspect]
     Active Substance: NAPROXEN SODIUM
     Indication: ARTHRITIS
     Dosage: 1 DF,
     Route: 048
     Dates: start: 20141010
  3. BAYER 81 MG ENTERIC [Concomitant]
     Dosage: 1 DF, QD,
  4. LUTEIN [Concomitant]
     Active Substance: LUTEIN

REACTIONS (1)
  - Drug effect incomplete [Unknown]

NARRATIVE: CASE EVENT DATE: 20141010
